FAERS Safety Report 6235457 (Version 2)
Quarter: 2020Q3

REPORT INFORMATION
  Report Type: Report from Study
  Country: PL (occurrence: PL)
  Receive Date: 20070129
  Receipt Date: 20070216
  Transmission Date: 20201105
  Serious: Yes (Hospitalization)
  Sender: FDA-Public Use
  Company Number: HQWYE772126JAN07

PATIENT
  Age: 60 Year
  Sex: Male
  Weight: 77 kg

DRUGS (4)
  1. TEMSIROLIMUS. [Suspect]
     Active Substance: TEMSIROLIMUS
     Indication: RENAL CELL CARCINOMA
     Route: 042
     Dates: start: 20040206, end: 20040910
  2. TEMSIROLIMUS. [Suspect]
     Active Substance: TEMSIROLIMUS
     Route: 042
     Dates: start: 20040924
  3. ROFERON?A [Suspect]
     Active Substance: INTERFERON ALFA-2A
     Dosage: 6 MU 3 TIMES PER WEEK
     Route: 058
     Dates: start: 20040924
  4. ROFERON?A [Suspect]
     Active Substance: INTERFERON ALFA-2A
     Indication: RENAL CELL CARCINOMA
     Dosage: 6 MU 3 TIMES PER WEEK
     Route: 058
     Dates: start: 20040206, end: 20040910

REACTIONS (6)
  - Diplopia [Recovered/Resolved]
  - VIth nerve disorder [None]
  - Cerebral atrophy [None]
  - Paresis cranial nerve [Not Recovered/Not Resolved]
  - Facial nerve disorder [None]
  - Cerebrovascular disorder [None]

NARRATIVE: CASE EVENT DATE: 20040917
